FAERS Safety Report 7822270-X (Version None)
Quarter: 2011Q4

REPORT INFORMATION
  Report Type: 
  Country: None (occurrence: None)
  Receive Date: 20111018
  Receipt Date: 20101118
  Transmission Date: 20120403
  Serious: No
  Sender: FDA-Public Use
  Company Number: US-ASTRAZENECA-2010SE55099

PATIENT
  Weight: 49 kg

DRUGS (3)
  1. WELCHOL [Concomitant]
  2. SINGULAIR [Concomitant]
  3. SYMBICORT [Suspect]
     Dosage: 160/4.5MCG TWO PUFFS BID
     Route: 055
     Dates: start: 20091001

REACTIONS (1)
  - ALOPECIA [None]
